FAERS Safety Report 14411501 (Version 3)
Quarter: 2018Q1

REPORT INFORMATION
  Report Type: Spontaneous
  Country: AU (occurrence: AU)
  Receive Date: 20180119
  Receipt Date: 20180130
  Transmission Date: 20180509
  Serious: Yes (Hospitalization)
  Sender: FDA-Public Use
  Company Number: AU-PFIZER INC-2018025684

PATIENT
  Age: 58 Year
  Sex: Male

DRUGS (11)
  1. ASPIRIN. [Suspect]
     Active Substance: ASPIRIN
     Dosage: UNK
  2. IRBESARTAN. [Suspect]
     Active Substance: IRBESARTAN
     Dosage: UNK
  3. MAGNESIUM [Suspect]
     Active Substance: MAGNESIUM
     Dosage: UNK
  4. MEGA B [Suspect]
     Active Substance: VITAMINS
     Dosage: UNK
  5. METOPROLOL. [Suspect]
     Active Substance: METOPROLOL
     Dosage: UNK
  6. SOMAC [Suspect]
     Active Substance: PANTOPRAZOLE SODIUM
     Dosage: UNK
  7. METFORMIN HCL [Suspect]
     Active Substance: METFORMIN HYDROCHLORIDE
     Dosage: UNK
  8. NIFEDIPINE. [Suspect]
     Active Substance: NIFEDIPINE
     Dosage: UNK
     Route: 065
  9. SEROQUEL [Suspect]
     Active Substance: QUETIAPINE FUMARATE
     Dosage: UNK
  10. VITAMIN D [Suspect]
     Active Substance: CHOLECALCIFEROL
     Dosage: UNK
  11. COVERSYL PLUS [Suspect]
     Active Substance: INDAPAMIDE\PERINDOPRIL
     Dosage: UNK

REACTIONS (3)
  - Hypotension [Unknown]
  - Wrong drug administered [Unknown]
  - Bradycardia [Unknown]
